FAERS Safety Report 7549413-X (Version None)
Quarter: 2011Q2

REPORT INFORMATION
  Report Type: 
  Country: None (occurrence: None)
  Receive Date: 20110615
  Receipt Date: 20050921
  Transmission Date: 20111010
  Serious: Yes (Other)
  Sender: FDA-Public Use
  Company Number: PHFR2004GB03598

PATIENT
  Sex: Male

DRUGS (4)
  1. RANITIDINE [Concomitant]
     Indication: DYSPEPSIA
     Dosage: 150MG/DAY
     Route: 048
  2. FOLIC ACID [Concomitant]
     Indication: COELIAC DISEASE
     Dosage: 5MG/DAY
     Route: 048
  3. CLOZAPINE [Suspect]
     Indication: SCHIZOPHRENIA
     Route: 048
     Dates: start: 19910510
  4. CARBAMAZEPIN - SLOW RELEASE ^RATIOPHARM^ [Concomitant]
     Indication: MOOD ALTERED
     Route: 048

REACTIONS (10)
  - HYDRONEPHROSIS [None]
  - RENAL FAILURE CHRONIC [None]
  - URINARY INCONTINENCE [None]
  - ANAEMIA [None]
  - BLOOD CREATININE INCREASED [None]
  - BLOOD VISCOSITY INCREASED [None]
  - BUNDLE BRANCH BLOCK RIGHT [None]
  - BLADDER OBSTRUCTION [None]
  - BLADDER DISORDER [None]
  - HAEMOGLOBIN DECREASED [None]
